FAERS Safety Report 4389384-0 (Version None)
Quarter: 2004Q2

REPORT INFORMATION
  Report Type: 
  Country: None (occurrence: None)
  Receive Date: 20040630
  Receipt Date: 20040621
  Transmission Date: 20050107
  Serious: Yes (Life-Threatening)
  Sender: FDA-Public Use
  Company Number: 200410342BYL

PATIENT
  Age: 77 Year
  Sex: Male

DRUGS (5)
  1. ADALAT CC [Suspect]
     Indication: HYPERTENSION
     Dosage: 10 MG, BID, ORAL
     Route: 048
     Dates: start: 20031009, end: 20040614
  2. NEUROVITAN [Concomitant]
  3. MARZULENE [Concomitant]
  4. PANVITAN [Concomitant]
  5. NEUZYM [Concomitant]

REACTIONS (4)
  - CONDITION AGGRAVATED [None]
  - HYPOPROTEINAEMIA [None]
  - PROTEIN URINE PRESENT [None]
  - RENAL DISORDER [None]
